FAERS Safety Report 6041116-6 (Version None)
Quarter: 2009Q1

REPORT INFORMATION
  Report Type: 
  Country: None (occurrence: None)
  Receive Date: 20090116
  Receipt Date: 20080926
  Transmission Date: 20090719
  Serious: No
  Sender: FDA-Public Use
  Company Number: US-BRISTOL-MYERS SQUIBB COMPANY-14317002

PATIENT
  Age: 18 Year
  Sex: Female

DRUGS (3)
  1. ABILIFY [Suspect]
     Indication: AGGRESSION
     Dosage: DURATION APPROXIMATELY ONE MONTH
     Route: 048
     Dates: start: 20080505, end: 20080608
  2. ABILIFY [Suspect]
     Indication: AGITATION
     Dosage: DURATION APPROXIMATELY ONE MONTH
     Route: 048
     Dates: start: 20080505, end: 20080608
  3. ABILIFY [Suspect]
     Indication: MOOD SWINGS
     Dosage: DURATION APPROXIMATELY ONE MONTH
     Route: 048
     Dates: start: 20080505, end: 20080608

REACTIONS (8)
  - DECREASED ACTIVITY [None]
  - DYSPHAGIA [None]
  - EYE MOVEMENT DISORDER [None]
  - GAIT DISTURBANCE [None]
  - MUSCULAR WEAKNESS [None]
  - STARING [None]
  - SWELLING FACE [None]
  - TREMOR [None]
